FAERS Safety Report 8845436 (Version 1)
Quarter: 2012Q4

REPORT INFORMATION
  Report Type: Spontaneous
  Country: US (occurrence: None)
  Receive Date: 20121015
  Receipt Date: 20121015
  Transmission Date: 20130627
  Serious: Yes (Hospitalization)
  Sender: FDA-Public Use
  Company Number: NSR_00679_2012

PATIENT
  Age: 75 Year
  Sex: Male

DRUGS (1)
  1. BACLOFEN [Suspect]
     Indication: PRODUCT USED FOR UNKNOWN INDICATION

REACTIONS (5)
  - Mental status changes [None]
  - Lethargy [None]
  - Depressed level of consciousness [None]
  - Metabolic encephalopathy [None]
  - Toxic encephalopathy [None]
